FAERS Safety Report 4468088-X (Version None)
Quarter: 2004Q4

REPORT INFORMATION
  Report Type: 
  Country: None (occurrence: None)
  Receive Date: 20041004
  Receipt Date: 20041004
  Transmission Date: 20050328
  Serious: Yes (Death)
  Sender: FDA-Public Use
  Company Number: None

PATIENT
  Sex: Male
  Weight: 70 kg

DRUGS (1)
  1. CYPHER-SIROLIMUS ELUTING STENT [Suspect]
     Indication: ARTERIOGRAM CORONARY
     Dates: start: 20040601, end: 20040607

REACTIONS (3)
  - CARDIAC ARREST [None]
  - POST PROCEDURAL COMPLICATION [None]
  - THROMBOSIS [None]
